FAERS Safety Report 20602030 (Version 1)
Quarter: 2022Q1

REPORT INFORMATION
  Report Type: Spontaneous
  Country: DK (occurrence: DK)
  Receive Date: 20220316
  Receipt Date: 20220316
  Transmission Date: 20220423
  Serious: Yes (Hospitalization)
  Sender: FDA-Public Use
  Company Number: DK-NOVARTISPH-NVSC2022DK059893

PATIENT
  Age: 45 Year
  Sex: Female
  Weight: 116 kg

DRUGS (6)
  1. DEXAMETHASONE [Suspect]
     Active Substance: DEXAMETHASONE
     Indication: Plasma cell myeloma
     Dosage: 40 MG
     Route: 048
     Dates: start: 20211116, end: 20211124
  2. DARZALEX [Suspect]
     Active Substance: DARATUMUMAB
     Indication: Plasma cell myeloma
     Dosage: 1872 MG
     Route: 042
     Dates: start: 20211116, end: 20211116
  3. ACYCLOVIR [Concomitant]
     Active Substance: ACYCLOVIR
     Indication: Prophylaxis
     Dosage: 800 MG, QD (400 MG X 2 X 1 DAYS)
     Route: 048
     Dates: start: 20190709
  4. MABLET [Concomitant]
     Indication: Product used for unknown indication
     Dosage: 720 MG, QD
     Route: 048
     Dates: start: 20201113
  5. CHOLECALCIFEROL [Concomitant]
     Active Substance: CHOLECALCIFEROL
     Indication: Prophylaxis
     Dosage: 20 X 1 X 1 DAYS
     Route: 048
     Dates: start: 20210507
  6. UNIKALK FORTE [Concomitant]
     Indication: Prophylaxis
     Dosage: 38 MG/UG X 2 X 1 DAYS
     Route: 048
     Dates: start: 20170630

REACTIONS (2)
  - Escherichia urinary tract infection [Recovered/Resolved]
  - Haemoglobin decreased [Unknown]

NARRATIVE: CASE EVENT DATE: 20211130
